FAERS Safety Report 8812433 (Version 3)
Quarter: 2014Q2

REPORT INFORMATION
  Report Type: Spontaneous
  Country: IE (occurrence: IE)
  Receive Date: 20120927
  Receipt Date: 20131018
  Transmission Date: 20141212
  Serious: Yes (Hospitalization, Other)
  Sender: FDA-Public Use
  Company Number: IE-PFIZER INC-2012239046

PATIENT
  Age: 36 Year
  Sex: Male

DRUGS (5)
  1. DEPO-MEDRONE [Suspect]
     Indication: BACK PAIN
     Dosage: 160 MG, 40 MG/ML
  2. DEPO-MEDRONE [Suspect]
     Indication: INFLAMMATION
  3. OMNIPAQUE [Concomitant]
     Dosage: UNK
  4. MARCAIN POLYAMP STERIPACK [Concomitant]
     Dosage: 10 ML OF 0.25 %
  5. NORMAL SALINE [Concomitant]
     Dosage: 5 ML

REACTIONS (3)
  - Anaphylactic reaction [Recovered/Resolved]
  - Oedema [Recovered/Resolved]
  - Hypotension [Recovered/Resolved]
